FAERS Safety Report 4434538-8 (Version None)
Quarter: 2004Q3

REPORT INFORMATION
  Report Type: 
  Country: None (occurrence: None)
  Receive Date: 20040721
  Receipt Date: 20040510
  Transmission Date: 20050211
  Serious: Yes (Other)
  Sender: FDA-Public Use
  Company Number: PHEH2004US03669

PATIENT
  Age: 87 Year
  Sex: Male

DRUGS (1)
  1. OCUPRESS [Suspect]
     Indication: GLAUCOMA
     Dosage: TOPICAL OPHTH.
     Route: 061

REACTIONS (2)
  - DISEASE PROGRESSION [None]
  - VISUAL ACUITY REDUCED [None]
